FAERS Safety Report 5749945-0 (Version None)
Quarter: 2008Q2

REPORT INFORMATION
  Report Type: 
  Country: None (occurrence: None)
  Receive Date: 20080520
  Receipt Date: 20080520
  Transmission Date: 20081010
  Serious: Yes (Hospitalization)
  Sender: FDA-Public Use
  Company Number: None

PATIENT
  Age: 13 Year
  Sex: Female
  Weight: 50 kg

DRUGS (1)
  1. ACCUTANE [Suspect]
     Indication: ACNE

REACTIONS (4)
  - CONTUSION [None]
  - GENITAL ULCERATION [None]
  - MICTURITION DISORDER [None]
  - PAIN [None]
